FAERS Safety Report 6890285-4 (Version None)
Quarter: 2010Q3

REPORT INFORMATION
  Report Type: 
  Country: None (occurrence: None)
  Receive Date: 20100730
  Receipt Date: 20080923
  Transmission Date: 20110219
  Serious: No
  Sender: FDA-Public Use
  Company Number: US-PFIZER INC-2008079859

PATIENT

DRUGS (3)
  1. LIPITOR [Suspect]
  2. PLAVIX [Suspect]
     Route: 048
  3. ALL OTHER THERAPEUTIC PRODUCTS [Concomitant]
     Indication: HIV INFECTION

REACTIONS (1)
  - RASH [None]
